FAERS Safety Report 10171743 (Version 1)
Quarter: 2014Q2

REPORT INFORMATION
  Report Type: Report from Study
  Country: US (occurrence: US)
  Receive Date: 20140514
  Receipt Date: 20140514
  Transmission Date: 20141212
  Serious: Yes (Hospitalization)
  Sender: FDA-Public Use
  Company Number: US-SA-2014SA059848

PATIENT
  Age: 60 Year
  Sex: Male
  Weight: 82 kg

DRUGS (15)
  1. LANTUS [Suspect]
     Indication: PRODUCT USED FOR UNKNOWN INDICATION
     Dosage: DOSE:23 UNIT(S)
     Route: 065
  2. INVESTIGATIONAL DRUG [Suspect]
     Indication: PANCREATIC CARCINOMA
     Route: 048
     Dates: start: 20130924
  3. INVESTIGATIONAL DRUG [Suspect]
     Indication: PANCREATIC CARCINOMA
     Route: 048
     Dates: start: 20130718, end: 20130919
  4. GEMCITABINE [Suspect]
     Indication: PANCREATIC CARCINOMA
     Route: 042
     Dates: start: 20130717
  5. PACLITAXEL [Suspect]
     Indication: PANCREATIC CARCINOMA
     Route: 042
     Dates: start: 20130717
  6. NOVOLOG [Suspect]
     Indication: PRODUCT USED FOR UNKNOWN INDICATION
     Dosage: DOSE: AS PER SLIDING SCALE
     Route: 065
  7. MACROGOL [Concomitant]
  8. COLACE [Concomitant]
  9. CREON [Concomitant]
  10. MORPHINE [Concomitant]
  11. REGLAN [Concomitant]
  12. MEGACE [Concomitant]
  13. SERTRALINE [Concomitant]
  14. CALCITROL [Concomitant]
  15. ONDANSETRON [Concomitant]

REACTIONS (2)
  - Pyrexia [Recovered/Resolved]
  - Syncope [Recovered/Resolved]
